FAERS Safety Report 8517070-1 (Version None)
Quarter: 2012Q3

REPORT INFORMATION
  Report Type: 
  Country: None (occurrence: None)
  Receive Date: 20120718
  Receipt Date: 20120716
  Transmission Date: 20120928
  Serious: Yes (Other)
  Sender: FDA-Public Use
  Company Number: US-PFIZER INC-2012170919

PATIENT
  Sex: Female
  Weight: 54.4 kg

DRUGS (2)
  1. TOPROL-XL [Concomitant]
     Indication: VENTRICULAR EXTRASYSTOLES
     Dosage: UNK
  2. LIPITOR [Suspect]
     Indication: BLOOD CHOLESTEROL INCREASED
     Dosage: 40 MG, DAILY
     Dates: start: 20060101, end: 20120715

REACTIONS (1)
  - OSTEOARTHRITIS [None]
